FAERS Safety Report 24898386 (Version 1)
Quarter: 2025Q1

REPORT INFORMATION
  Report Type: Spontaneous
  Country: JP (occurrence: JP)
  Receive Date: 20250129
  Receipt Date: 20250129
  Transmission Date: 20250409
  Serious: Yes (Death)
  Sender: STRIDES
  Company Number: JP-STRIDES ARCOLAB LIMITED-2025SP001335

PATIENT
  Age: 2 Year
  Sex: Male

DRUGS (1)
  1. ETOPOSIDE [Suspect]
     Active Substance: ETOPOSIDE
     Indication: Ependymoma
     Route: 048

REACTIONS (2)
  - Malignant neoplasm progression [Fatal]
  - Drug ineffective for unapproved indication [Fatal]
